FAERS Safety Report 4617996-5 (Version None)
Quarter: 2005Q1

REPORT INFORMATION
  Report Type: 
  Country: None (occurrence: None)
  Receive Date: 20050324
  Receipt Date: 20030630
  Transmission Date: 20050727
  Serious: Yes (Hospitalization)
  Sender: FDA-Public Use
  Company Number: GB-SANOFI-SYNTHELABO-D01200300844

PATIENT
  Sex: Male
  Weight: 110 kg

DRUGS (4)
  1. SR57746 OR PLACEBO [Suspect]
     Route: 048
     Dates: start: 20030129, end: 20030628
  2. OXALIPLATIN [Suspect]
     Route: 042
     Dates: start: 20030618, end: 20030618
  3. FLUOROURACIL [Suspect]
     Dosage: 400 MG/M2 AS IV BOLUS THEN 600 MG/M2 AS 22 HOURS CONTINUOUS INFUSION D1-D2 Q2W
     Route: 042
     Dates: start: 20030618, end: 20030619
  4. LEUCOVORIN [Suspect]
     Dosage: 200 MG/M2 AS 2 HOURS INFUSION ON D1-D2 Q2W
     Route: 042
     Dates: start: 20030618, end: 20030619

REACTIONS (1)
  - MYOCARDIAL INFARCTION [None]
